FAERS Safety Report 7904256-X (Version None)
Quarter: 2011Q4

REPORT INFORMATION
  Report Type: 
  Country: None (occurrence: None)
  Receive Date: 20111109
  Receipt Date: 20111104
  Transmission Date: 20120403
  Serious: Yes (Hospitalization, Disabling, Other)
  Sender: FDA-Public Use
  Company Number: US-PFIZER INC-2011137026

PATIENT
  Sex: Female

DRUGS (5)
  1. CHANTIX [Suspect]
     Indication: SMOKING CESSATION THERAPY
     Dosage: 0.5MG AND 1MG
     Dates: start: 20061123, end: 20070424
  2. AMBIEN [Concomitant]
     Indication: INSOMNIA
     Dosage: UNK
     Dates: start: 20061024, end: 20100501
  3. PROTONIX [Concomitant]
     Indication: GASTROOESOPHAGEAL REFLUX DISEASE
     Dosage: UNK
     Dates: start: 20000101
  4. BUSPIRONE [Concomitant]
     Indication: PREMENSTRUAL SYNDROME
     Dosage: UNK
     Dates: start: 20060418, end: 20070801
  5. BUSPIRONE [Concomitant]
     Indication: WEIGHT INCREASED

REACTIONS (11)
  - SUICIDE ATTEMPT [None]
  - INTENTIONAL OVERDOSE [None]
  - PANIC ATTACK [None]
  - MENTAL DISORDER [None]
  - DEPRESSION [None]
  - AGGRESSION [None]
  - ROAD TRAFFIC ACCIDENT [None]
  - DRUG LEVEL INCREASED [None]
  - SUICIDAL BEHAVIOUR [None]
  - ANXIETY [None]
  - SCHIZOPHRENIA [None]
